FAERS Safety Report 17978517 (Version 1)
Quarter: 2020Q3

REPORT INFORMATION
  Report Type: Spontaneous
  Country: GB (occurrence: GB)
  Receive Date: 20200703
  Receipt Date: 20200703
  Transmission Date: 20201103
  Serious: Yes (Hospitalization)
  Sender: FDA-Public Use
  Company Number: GB-MICRO LABS LIMITED-ML2020-01885

PATIENT
  Age: 72 Year
  Sex: Female

DRUGS (14)
  1. DOXAZOSIN [Concomitant]
     Active Substance: DOXAZOSIN MESYLATE
  2. BISOPROLOL [Concomitant]
     Active Substance: BISOPROLOL
  3. PARACETAMOL [Concomitant]
     Active Substance: ACETAMINOPHEN
  4. ESTRIOL [Concomitant]
     Active Substance: ESTRIOL
  5. COSOPT [Concomitant]
     Active Substance: DORZOLAMIDE HYDROCHLORIDE\TIMOLOL MALEATE
  6. LATANOPROST. [Concomitant]
     Active Substance: LATANOPROST
  7. CANDESARTAN. [Concomitant]
     Active Substance: CANDESARTAN
  8. AMOXICILLIN/CLAVULANIC ACID [Suspect]
     Active Substance: AMOXICILLIN\CLAVULANIC ACID
  9. DABIGATRAN [Concomitant]
     Active Substance: DABIGATRAN
  10. NYSTAN [Concomitant]
     Active Substance: NYSTATIN
  11. SIMVASTATIN. [Concomitant]
     Active Substance: SIMVASTATIN
  12. NOVORAPID [Concomitant]
     Active Substance: INSULIN ASPART
  13. BENZYDAMINE [Concomitant]
     Active Substance: BENZYDAMINE
  14. LEVEMIR [Concomitant]
     Active Substance: INSULIN DETEMIR

REACTIONS (1)
  - Heart rate increased [Recovered/Resolved]
